FAERS Safety Report 8100985-6 (Version None)
Quarter: 2012Q1

REPORT INFORMATION
  Report Type: 
  Country: None (occurrence: None)
  Receive Date: 20120129
  Receipt Date: 20111115
  Transmission Date: 20120608
  Serious: No
  Sender: FDA-Public Use
  Company Number: US-ABBOTT-11P-163-0874471-00

PATIENT
  Age: 41 Year
  Sex: Female

DRUGS (5)
  1. COLAZAL [Concomitant]
     Indication: ILL-DEFINED DISORDER
     Dosage: 3 PILLS TID
  2. PAXIL [Concomitant]
     Indication: ANXIETY
  3. HUMIRA [Suspect]
  4. HUMIRA [Suspect]
     Indication: COLITIS ULCERATIVE
     Dates: start: 20111012
  5. HUMIRA [Suspect]
     Dosage: ONE TIME DOSE

REACTIONS (1)
  - COLITIS ULCERATIVE [None]
